FAERS Safety Report 8565316-6 (Version None)
Quarter: 2012Q3

REPORT INFORMATION
  Report Type: 
  Country: None (occurrence: None)
  Receive Date: 20120724
  Receipt Date: 20120710
  Transmission Date: 20120928
  Serious: Yes (Other)
  Sender: FDA-Public Use
  Company Number: B0815551A

PATIENT
  Age: 43 Year
  Sex: Male

DRUGS (3)
  1. ADVAIR DISKUS 100/50 [Suspect]
     Indication: ASTHMA
     Dosage: INHALED
     Route: 055
  2. ACITRETIN [Concomitant]
  3. RITONAVIR [Suspect]
     Indication: HIV INFECTION
     Dosage: UNK
     Dates: start: 19970101

REACTIONS (7)
  - ADRENAL SUPPRESSION [None]
  - KAPOSI'S SARCOMA [None]
  - PAPULE [None]
  - ADRENOCORTICAL INSUFFICIENCY ACUTE [None]
  - OEDEMA PERIPHERAL [None]
  - CUSHING'S SYNDROME [None]
  - SKIN PAPILLOMA [None]
